FAERS Safety Report 21104843 (Version 2)
Quarter: 2022Q3

REPORT INFORMATION
  Report Type: Spontaneous
  Country: None (occurrence: US)
  Receive Date: 20220720
  Receipt Date: 20220823
  Transmission Date: 20221027
  Serious: No
  Sender: FDA-Public Use
  Company Number: US-FDC LIMITED-2131051

PATIENT
  Age: 78 Year
  Sex: Male
  Weight: 97.727 kg

DRUGS (3)
  1. TIMOLOL MALEATE [Suspect]
     Active Substance: TIMOLOL MALEATE
     Indication: Ocular hypertension
     Route: 047
     Dates: start: 20220601
  2. LATANOPROST [Concomitant]
     Active Substance: LATANOPROST
     Route: 065
  3. ROCKLATAN [Concomitant]
     Active Substance: LATANOPROST\NETARSUDIL MESYLATE
     Route: 065

REACTIONS (1)
  - Fatigue [Not Recovered/Not Resolved]

NARRATIVE: CASE EVENT DATE: 20220615
